FAERS Safety Report 16878779 (Version 4)
Quarter: 2020Q1

REPORT INFORMATION
  Report Type: Report from Study
  Country: JP (occurrence: JP)
  Receive Date: 20191002
  Receipt Date: 20200207
  Transmission Date: 20200409
  Serious: Yes (Death, Other)
  Sender: FDA-Public Use
  Company Number: JP-JNJFOC-20190803758

PATIENT
  Age: 64 Year
  Sex: Male
  Weight: 49.2 kg

DRUGS (8)
  1. DEXAMETHASONE. [Concomitant]
     Active Substance: DEXAMETHASONE
     Route: 065
     Dates: start: 20180126, end: 20180126
  2. VELCADE [Suspect]
     Active Substance: BORTEZOMIB
     Route: 065
     Dates: start: 20180118, end: 20180118
  3. DARZALEX [Suspect]
     Active Substance: DARATUMUMAB
     Route: 041
     Dates: start: 20180125, end: 20180125
  4. VELCADE [Suspect]
     Active Substance: BORTEZOMIB
     Indication: PLASMA CELL MYELOMA
     Route: 065
     Dates: start: 20180111, end: 20180111
  5. DEXAMETHASONE. [Concomitant]
     Active Substance: DEXAMETHASONE
     Route: 065
     Dates: start: 20180119, end: 20180119
  6. DARZALEX [Suspect]
     Active Substance: DARATUMUMAB
     Route: 041
     Dates: start: 20180118, end: 20180118
  7. DARZALEX [Suspect]
     Active Substance: DARATUMUMAB
     Indication: PLASMA CELL MYELOMA
     Route: 041
     Dates: start: 20180111, end: 20180111
  8. DEXAMETHASONE. [Concomitant]
     Active Substance: DEXAMETHASONE
     Indication: PLASMA CELL MYELOMA
     Route: 065
     Dates: start: 20180112, end: 20180112

REACTIONS (3)
  - Platelet count decreased [Not Recovered/Not Resolved]
  - Cerebral haemorrhage [Fatal]
  - Blood creatinine increased [Unknown]

NARRATIVE: CASE EVENT DATE: 20180201
